FAERS Safety Report 8739682 (Version 2)
Quarter: 2012Q4

REPORT INFORMATION
  Report Type: 
  Country: AU (occurrence: AU)
  Receive Date: 20120823
  Receipt Date: 20121016
  Transmission Date: 20130627
  Serious: Yes (Hospitalization)
  Sender: FDA-Public Use
  Company Number: AU-ROCHE-1102375

PATIENT
  Age: 85 Year
  Sex: Male

DRUGS (1)
  1. ZELBORAF [Suspect]
     Indication: METASTATIC MALIGNANT MELANOMA
     Route: 065

REACTIONS (4)
  - Gastrointestinal disorder [Unknown]
  - Pain [Unknown]
  - Hepatic function abnormal [Unknown]
  - Hepatotoxicity [Unknown]
